FAERS Safety Report 9547222 (Version 1)
Quarter: 2013Q2

REPORT INFORMATION
  Report Type: Spontaneous
  Country: US (occurrence: None)
  Receive Date: 20130606
  Receipt Date: 20130606
  Transmission Date: 20140414
  Serious: No
  Sender: FDA-Public Use
  Company Number: 163-POMAL-13033427

PATIENT
  Sex: Male

DRUGS (1)
  1. POMALYST (POMALIDOMIDE) (1 MILLIGRAM, CAPSULES) [Suspect]
     Indication: PRODUCT USED FOR UNKNOWN INDICATION
     Route: 048

REACTIONS (1)
  - Bone pain [None]
